FAERS Safety Report 10700005 (Version 2)
Quarter: 2017Q2

REPORT INFORMATION
  Report Type: Report from Study
  Country: CA (occurrence: CA)
  Receive Date: 20150109
  Receipt Date: 20170428
  Transmission Date: 20170829
  Serious: Yes (Life-Threatening, Hospitalization)
  Sender: FDA-Public Use
  Company Number: CA-JNJFOC-20150103862

PATIENT
  Age: 17 Year
  Sex: Female
  Weight: 110.9 kg

DRUGS (1)
  1. REMICADE [Suspect]
     Active Substance: INFLIXIMAB
     Indication: JUVENILE IDIOPATHIC ARTHRITIS
     Route: 042
     Dates: start: 20141229

REACTIONS (8)
  - Oxygen saturation abnormal [Unknown]
  - Off label use [Unknown]
  - Chills [Unknown]
  - Vomiting [Unknown]
  - Respiratory distress [Unknown]
  - Back pain [Unknown]
  - Flank pain [Unknown]
  - Infusion related reaction [Unknown]

NARRATIVE: CASE EVENT DATE: 20141229
